FAERS Safety Report 25365747 (Version 3)
Quarter: 2025Q3

REPORT INFORMATION
  Report Type: Report from Study
  Country: US (occurrence: US)
  Receive Date: 20250528
  Receipt Date: 20250820
  Transmission Date: 20251021
  Serious: Yes (Hospitalization, Other)
  Sender: ABBVIE
  Company Number: US-ABBVIE-6296498

PATIENT
  Age: 77 Year
  Sex: Male

DRUGS (2)
  1. SKYRIZI [Suspect]
     Active Substance: RISANKIZUMAB-RZAA
     Indication: Crohn^s disease
     Route: 058
     Dates: start: 20241023
  2. SKYRIZI [Suspect]
     Active Substance: RISANKIZUMAB-RZAA
     Route: 058
     Dates: start: 20250201

REACTIONS (5)
  - Intestinal resection [Recovering/Resolving]
  - Thrombosis [Recovering/Resolving]
  - Colectomy [Recovering/Resolving]
  - Reading disorder [Unknown]
  - Fungal infection [Recovering/Resolving]

NARRATIVE: CASE EVENT DATE: 20250101
